FAERS Safety Report 7952094-4 (Version None)
Quarter: 2011Q4

REPORT INFORMATION
  Report Type: 
  Country: None (occurrence: None)
  Receive Date: 20111201
  Receipt Date: 20111124
  Transmission Date: 20120403
  Serious: Yes (Other)
  Sender: FDA-Public Use
  Company Number: PHHY2011JP103789

PATIENT
  Age: 67 Year
  Sex: Female

DRUGS (1)
  1. LAMISIL [Suspect]
     Route: 048
     Dates: start: 20081101, end: 20081101

REACTIONS (1)
  - LIVER DISORDER [None]
